FAERS Safety Report 7518001-3 (Version None)
Quarter: 2011Q2

REPORT INFORMATION
  Report Type: 
  Country: None (occurrence: None)
  Receive Date: 20110602
  Receipt Date: 20110523
  Transmission Date: 20111010
  Serious: No
  Sender: FDA-Public Use
  Company Number: GB-JNJFOC-20110407721

PATIENT
  Sex: Male

DRUGS (6)
  1. DURAGESIC-100 [Suspect]
     Indication: BACK PAIN
     Route: 062
  2. DURAGESIC-100 [Suspect]
     Route: 062
     Dates: start: 20110318
  3. DURAGESIC-100 [Suspect]
     Indication: OSTEOARTHRITIS
     Route: 062
  4. DURAGESIC-100 [Suspect]
     Route: 062
  5. DURAGESIC-100 [Suspect]
     Route: 062
     Dates: start: 20110318
  6. DURAGESIC-100 [Suspect]
     Route: 062

REACTIONS (3)
  - WRONG TECHNIQUE IN DRUG USAGE PROCESS [None]
  - PRODUCT ADHESION ISSUE [None]
  - DRUG EFFECT INCREASED [None]
